FAERS Safety Report 11581138 (Version 1)
Quarter: 2015Q4

REPORT INFORMATION
  Report Type: Spontaneous
  Country: US (occurrence: US)
  Receive Date: 20151001
  Receipt Date: 20151001
  Transmission Date: 20160304
  Serious: No
  Sender: FDA-Public Use
  Company Number: US-ROCHE-641385

PATIENT
  Age: 58 Year
  Sex: Male

DRUGS (5)
  1. COPEGUS [Suspect]
     Active Substance: RIBAVIRIN
     Dosage: WEEK 7 OF TREATMENT
     Route: 048
  2. CENTRUM SILVER [Concomitant]
     Active Substance: MINERALS\VITAMINS
     Route: 065
  3. PEGASYS [Suspect]
     Active Substance: PEGINTERFERON ALFA-2A
     Indication: HEPATITIS C
     Dosage: DOSEFORM: PRE-FILLED SYRINGE
     Route: 058
     Dates: start: 20090619, end: 20091228
  4. PEGASYS [Suspect]
     Active Substance: PEGINTERFERON ALFA-2A
     Dosage: WEEK 7 OF TREATMENT
     Route: 058
  5. COPEGUS [Suspect]
     Active Substance: RIBAVIRIN
     Indication: HEPATITIS C
     Dosage: TAKEN IN DIVIDED DOSES
     Route: 048
     Dates: start: 20090619, end: 20091228

REACTIONS (24)
  - Pyrexia [Unknown]
  - Weight decreased [Unknown]
  - Pain in extremity [Not Recovered/Not Resolved]
  - Peripheral coldness [Unknown]
  - Hypoaesthesia [Unknown]
  - Fall [Unknown]
  - Viral load increased [Unknown]
  - Pain in extremity [Not Recovered/Not Resolved]
  - Blister [Recovered/Resolved]
  - Dyspnoea [Not Recovered/Not Resolved]
  - Eye pain [Unknown]
  - Asthenia [Not Recovered/Not Resolved]
  - Decreased appetite [Not Recovered/Not Resolved]
  - Pruritus [Recovering/Resolving]
  - Fatigue [Not Recovered/Not Resolved]
  - Pain [Unknown]
  - Hyperhidrosis [Not Recovered/Not Resolved]
  - Insomnia [Recovered/Resolved]
  - Decreased appetite [Not Recovered/Not Resolved]
  - Sleep disorder [Not Recovered/Not Resolved]
  - Back pain [Recovering/Resolving]
  - Visual impairment [Unknown]
  - Blood test abnormal [Unknown]
  - Rash pruritic [Unknown]

NARRATIVE: CASE EVENT DATE: 20090619
